FAERS Safety Report 21124791 (Version 1)
Quarter: 2022Q3

REPORT INFORMATION
  Report Type: Report from Study
  Country: NL (occurrence: NL)
  Receive Date: 20220725
  Receipt Date: 20220725
  Transmission Date: 20221027
  Serious: Yes (Death, Other)
  Sender: FDA-Public Use
  Company Number: NL-ABBVIE-22P-114-4400524-00

PATIENT
  Sex: Male

DRUGS (3)
  1. VENETOCLAX [Suspect]
     Active Substance: VENETOCLAX
     Indication: Chronic myelomonocytic leukaemia
     Dosage: DAYS 1 - 2
     Route: 048
     Dates: start: 20191101
  2. VENETOCLAX [Suspect]
     Active Substance: VENETOCLAX
     Dosage: DAYS 3 - 38
     Route: 048
     Dates: start: 20191103
  3. AZACITIDINE [Concomitant]
     Active Substance: AZACITIDINE
     Indication: Chronic myelomonocytic leukaemia
     Dosage: DAYS 1 - 7
     Route: 048

REACTIONS (7)
  - Death [Fatal]
  - Thrombocytopenia [Unknown]
  - Acute myeloid leukaemia [Unknown]
  - Minimal residual disease [Unknown]
  - Disease recurrence [Unknown]
  - COVID-19 [Unknown]
  - Off label use [Unknown]

NARRATIVE: CASE EVENT DATE: 20190101
